FAERS Safety Report 8146759-1 (Version None)
Quarter: 2012Q1

REPORT INFORMATION
  Report Type: 
  Country: None (occurrence: None)
  Receive Date: 20120217
  Receipt Date: 20111005
  Transmission Date: 20120608
  Serious: No
  Sender: FDA-Public Use
  Company Number: US-ABBOTT-11P-163-0861309-00

PATIENT
  Sex: Female
  Weight: 68.1 kg

DRUGS (2)
  1. SIMCOR [Suspect]
     Indication: HIGH DENSITY LIPOPROTEIN DECREASED
     Dosage: AT BEDTIME
     Dates: start: 20110801
  2. SIMCOR [Suspect]
     Indication: BLOOD TRIGLYCERIDES INCREASED
     Dosage: AT BEDTIME
     Dates: start: 20100801, end: 20110301

REACTIONS (2)
  - PAIN IN EXTREMITY [None]
  - MUSCULOSKELETAL PAIN [None]
